FAERS Safety Report 8828411 (Version 2)
Quarter: 2013Q1

REPORT INFORMATION
  Report Type: Spontaneous
  Country: US (occurrence: US)
  Receive Date: 20121005
  Receipt Date: 20130101
  Transmission Date: 20140127
  Serious: No
  Sender: FDA-Public Use
  Company Number: US-BIOGENIDEC-2012BI041153

PATIENT
  Age: 37 Year
  Sex: Female

DRUGS (1)
  1. TYSABRI [Suspect]
     Indication: MULTIPLE SCLEROSIS
     Route: 042
     Dates: start: 20091211, end: 20120717

REACTIONS (9)
  - Cognitive disorder [Recovered/Resolved]
  - Feeling hot [Recovered/Resolved]
  - Mental impairment [Recovered/Resolved]
  - Dysphemia [Recovered/Resolved]
  - Paranoia [Recovered/Resolved]
  - Intervertebral disc protrusion [Recovered/Resolved]
  - Constipation [Recovered/Resolved]
  - Headache [Recovered/Resolved]
  - Rash generalised [Recovered/Resolved]
